FAERS Safety Report 5982880-1 (Version None)
Quarter: 2008Q4

REPORT INFORMATION
  Report Type: 
  Country: None (occurrence: None)
  Receive Date: 20081205
  Receipt Date: 20081205
  Transmission Date: 20090506
  Serious: Yes (Other)
  Sender: FDA-Public Use
  Company Number: None

PATIENT
  Age: 20 Year
  Sex: Female
  Weight: 52.1637 kg

DRUGS (1)
  1. YAZ [Suspect]
     Indication: MENSTRUATION IRREGULAR
     Dosage: 1 DAILY PO
     Route: 048
     Dates: start: 20080630, end: 20081121

REACTIONS (4)
  - ANGER [None]
  - HEADACHE [None]
  - MOOD SWINGS [None]
  - PALPITATIONS [None]
